FAERS Safety Report 18987810 (Version 2)
Quarter: 2021Q2

REPORT INFORMATION
  Report Type: Spontaneous
  Country: NL (occurrence: NL)
  Receive Date: 20210309
  Receipt Date: 20210403
  Transmission Date: 20210717
  Serious: Yes (Death, Hospitalization)
  Sender: FDA-Public Use
  Company Number: NL-TEVA-2021-NL-1887382

PATIENT
  Age: 85 Year
  Sex: Male
  Weight: 93 kg

DRUGS (6)
  1. METFORMINE TABLET 500MG / BRAND NAME NOT SPECIFIED [Concomitant]
     Active Substance: METFORMIN HYDROCHLORIDE
     Dosage: 500 MILLIGRAM DAILY; 1 DD:THERAPY START DATE:THERAPY END DATE :ASKU
  2. HYPROMELLOSE OOGDRUPPELS 3MG/ML / BRAND NAME NOT SPECIFIED [Concomitant]
     Dosage: THERAPY START DATE :THERAPY END DATE :ASKU
  3. PARACETAMOL / BRAND NAME NOT SPECIFIED [Concomitant]
     Dosage: 3DD 2 TABL OF 500 MG; THERAPY START DATE; THERAPY END DATE : ASKED BUT UNKNOWN
  4. CALCIUMCARB/COLECALC KAUWTB 1,25G/400IE (500MG CA) / CALCI CHEW D3 KAU [Concomitant]
     Dosage: THERAPY START DATE:THERAPY END DATE :ASKU
  5. PROPRANOLOL TABLET 40MG / BRAND NAME NOT SPECIFIED [Concomitant]
     Dosage: 40 MILLIGRAM DAILY; 1 DD:THERAPY START DATE :THERAPY END DATE :ASKU
  6. CLOZAPINE TABLET   6,25MG / BRAND NAME NOT SPECIFIED [Suspect]
     Active Substance: CLOZAPINE
     Indication: HALLUCINATION
     Dosage: 2 DOSAGE FORMS DAILY;  THERAPY END DATE : ASKED BUT UNKNOWN
     Dates: start: 2020

REACTIONS (3)
  - Somnolence [Unknown]
  - Pneumonia aspiration [Fatal]
  - Vomiting [Fatal]

NARRATIVE: CASE EVENT DATE: 20210206
